FAERS Safety Report 8490510-2 (Version None)
Quarter: 2012Q3

REPORT INFORMATION
  Report Type: 
  Country: None (occurrence: None)
  Receive Date: 20120705
  Receipt Date: 20120702
  Transmission Date: 20120928
  Serious: No
  Sender: FDA-Public Use
  Company Number: US-B.I. PHARMACEUTICALS,INC./RIDGEFIELD-2012-BP-14865BP

PATIENT
  Sex: Female

DRUGS (6)
  1. ENALOPRIL [Concomitant]
     Indication: HYPERTENSION
  2. PREMARIN [Concomitant]
     Indication: HYSTERECTOMY
     Dosage: 3 MG
     Route: 048
  3. OMEPRAZOLE [Concomitant]
     Indication: GASTROOESOPHAGEAL REFLUX DISEASE
  4. CLARITIN [Concomitant]
  5. METOPROLOL SUCCINATE [Concomitant]
     Indication: HYPERTENSION
  6. PRADAXA [Suspect]
     Indication: ATRIAL FIBRILLATION
     Dosage: 300 MG
     Route: 048
     Dates: start: 20110901

REACTIONS (1)
  - ALOPECIA [None]
